FAERS Safety Report 8144456-X (Version None)
Quarter: 2012Q1

REPORT INFORMATION
  Report Type: 
  Country: None (occurrence: None)
  Receive Date: 20120217
  Receipt Date: 20120215
  Transmission Date: 20120608
  Serious: Yes (Other)
  Sender: FDA-Public Use
  Company Number: US-ROXANE LABORATORIES, INC.-2012-RO-00664RO

PATIENT
  Age: 29 Year
  Sex: Female

DRUGS (2)
  1. MORPHINE SULFATE [Suspect]
     Indication: PAIN
     Dosage: 200 MG
  2. HYDROMORPHONE HCL [Suspect]
     Indication: BREAKTHROUGH PAIN

REACTIONS (2)
  - DRUG TOLERANCE [None]
  - HYPERAESTHESIA [None]
